FAERS Safety Report 7586885-9 (Version None)
Quarter: 2011Q3

REPORT INFORMATION
  Report Type: 
  Country: None (occurrence: None)
  Receive Date: 20110701
  Receipt Date: 20110621
  Transmission Date: 20111222
  Serious: Yes (Other)
  Sender: FDA-Public Use
  Company Number: GB-UCBSA-035972

PATIENT

DRUGS (1)
  1. VIMPAT [Suspect]

REACTIONS (3)
  - CONVULSION [None]
  - ABNORMAL BEHAVIOUR [None]
  - AGITATION [None]
